FAERS Safety Report 5131817-6 (Version None)
Quarter: 2006Q4

REPORT INFORMATION
  Report Type: 
  Country: None (occurrence: None)
  Receive Date: 20061016
  Receipt Date: 20061004
  Transmission Date: 20070319
  Serious: Yes (Hospitalization)
  Sender: FDA-Public Use
  Company Number: 2002111536FR

PATIENT
  Age: 50 Year
  Sex: Female

DRUGS (6)
  1. SULFASALAZINE [Suspect]
     Dosage: 500 MG, ORAL
     Route: 048
     Dates: start: 20020304, end: 20020325
  2. FELDENE [Suspect]
     Dosage: ORAL
     Route: 048
     Dates: end: 20020325
  3. BROMAZEPAM (BROMAZEPAM) [Suspect]
     Dosage: ORAL
     Route: 048
  4. VASTAREL (TRIMETAZIDINE HYDROCHLORIDE) [Suspect]
     Dosage: ORAL
     Route: 048
     Dates: end: 20020325
  5. SIBELIUM (FLUNARIZINE DIHYDROCHLORIDE) [Suspect]
     Dosage: 10 MG, ORAL
     Route: 048
     Dates: end: 20020325
  6. SPASMINE JOLLY/OLD FORM/ (CRATAEGUS EXTRACT, VALERIAN EXTRACT) [Suspect]
     Dosage: ORAL
     Route: 048
     Dates: end: 20020325

REACTIONS (14)
  - BASOPHIL COUNT INCREASED [None]
  - BLOOD CREATINE PHOSPHOKINASE INCREASED [None]
  - BLOOD CREATINE PHOSPHOKINASE MB INCREASED [None]
  - CHOLESTASIS [None]
  - CYTOLYTIC HEPATITIS [None]
  - DRUG RASH WITH EOSINOPHILIA AND SYSTEMIC SYMPTOMS [None]
  - ELECTROCARDIOGRAM ST-T SEGMENT ELEVATION [None]
  - HYPERSENSITIVITY [None]
  - LYMPHOCYTE MORPHOLOGY ABNORMAL [None]
  - LYMPHOCYTOSIS [None]
  - MYOCARDITIS [None]
  - OEDEMA PERIPHERAL [None]
  - SCAN MYOCARDIAL PERFUSION ABNORMAL [None]
  - TROPONIN INCREASED [None]
